FAERS Safety Report 12644241 (Version 4)
Quarter: 2017Q3

REPORT INFORMATION
  Report Type: Spontaneous
  Country: US (occurrence: US)
  Receive Date: 20160811
  Receipt Date: 20170705
  Transmission Date: 20171127
  Serious: Yes (Hospitalization, Other)
  Sender: FDA-Public Use
  Company Number: US-PFIZER INC-2016383323

PATIENT
  Age: 63 Year
  Sex: Male

DRUGS (1)
  1. PIPERACILLIN/TAZOBACTAM [Suspect]
     Active Substance: PIPERACILLIN SODIUM\TAZOBACTAM SODIUM
     Indication: CHOLECYSTITIS ACUTE
     Dosage: 2.25 G, 4X/DAY (6 HOURLY)
     Route: 042

REACTIONS (2)
  - Pyrexia [Recovered/Resolved]
  - Bradycardia [Recovered/Resolved]
